FAERS Safety Report 10270312 (Version 2)
Quarter: 2015Q2

REPORT INFORMATION
  Report Type: Report from Study
  Country: US (occurrence: None)
  Receive Date: 20140626
  Receipt Date: 20150408
  Transmission Date: 20150821
  Serious: Yes (Hospitalization, Other)
  Sender: FDA-Public Use
  Company Number: 2406820

PATIENT
  Age: 68 Year
  Sex: Male

DRUGS (3)
  1. DOXORUBICIN HCL [Suspect]
     Active Substance: DOXORUBICIN HYDROCHLORIDE
     Indication: PLASMA CELL MYELOMA
     Route: 042
     Dates: start: 20131115, end: 20131115
  2. VINCRISTINE SULFATE. [Suspect]
     Active Substance: VINCRISTINE SULFATE
     Indication: PLASMA CELL MYELOMA
     Route: 042
     Dates: start: 20131115, end: 20131115
  3. DECADRON [Suspect]
     Active Substance: DEXAMETHASONE
     Indication: PLASMA CELL MYELOMA
     Dosage: 40 MG MILLIGRAM(S), 1 WEEK
     Route: 048
     Dates: start: 20131115, end: 20131210

REACTIONS (2)
  - Atrial flutter [None]
  - Pneumonia [None]

NARRATIVE: CASE EVENT DATE: 20131122
